FAERS Safety Report 4702283-7 (Version None)
Quarter: 2005Q2

REPORT INFORMATION
  Report Type: 
  Country: None (occurrence: None)
  Receive Date: 20050628
  Receipt Date: 20050628
  Transmission Date: 20051028
  Serious: Yes (Other)
  Sender: FDA-Public Use
  Company Number: None

PATIENT
  Age: 31 Year
  Sex: Male

DRUGS (1)
  1. CLOZAPINE [Suspect]
     Indication: PSYCHOTIC DISORDER
     Dosage: 500MG   BEDTIME   ORAL;  100MG  AM ORAL
     Route: 048
     Dates: start: 20050510, end: 20050531

REACTIONS (2)
  - ELECTROCARDIOGRAM T WAVE ABNORMAL [None]
  - SINUS TACHYCARDIA [None]
